FAERS Safety Report 24749465 (Version 2)
Quarter: 2024Q4

REPORT INFORMATION
  Report Type: Report from Study
  Country: GB (occurrence: GB)
  Receive Date: 20241218
  Receipt Date: 20241220
  Transmission Date: 20250115
  Serious: No
  Sender: AMGEN
  Company Number: GB-002147023-NVSC2024GB238101

PATIENT
  Sex: Female

DRUGS (1)
  1. AIMOVIG [Suspect]
     Active Substance: ERENUMAB\ERENUMAB-AOOE
     Indication: Migraine
     Dosage: 140 MG, Q4W
     Route: 058

REACTIONS (1)
  - Raynaud^s phenomenon [Unknown]
